FAERS Safety Report 9673029 (Version 2)
Quarter: 2014Q3

REPORT INFORMATION
  Report Type: Spontaneous
  Country: US (occurrence: US)
  Receive Date: 20131106
  Receipt Date: 20140715
  Transmission Date: 20150326
  Serious: Yes (Other)
  Sender: FDA-Public Use
  Company Number: US-AMGEN-USASP2013070227

PATIENT
  Age: 34 Year
  Sex: Female

DRUGS (1)
  1. ENBREL [Suspect]
     Active Substance: ETANERCEPT
     Indication: RHEUMATOID ARTHRITIS
     Dosage: UNK, QWK
     Route: 065
     Dates: start: 20130924

REACTIONS (9)
  - Staphylococcal bacteraemia [Recovered/Resolved]
  - Mass [Not Recovered/Not Resolved]
  - Staphylococcal infection [Recovered/Resolved]
  - Ear swelling [Not Recovered/Not Resolved]
  - Rash [Recovered/Resolved]
  - Skin odour abnormal [Recovered/Resolved]
  - Ear pruritus [Not Recovered/Not Resolved]
  - Erythema [Not Recovered/Not Resolved]
  - Joint swelling [Recovered/Resolved]

NARRATIVE: CASE EVENT DATE: 2013
